FAERS Safety Report 23703425 (Version 3)
Quarter: 2024Q2

REPORT INFORMATION
  Report Type: Spontaneous
  Country: ES (occurrence: ES)
  Receive Date: 20240403
  Receipt Date: 20240430
  Transmission Date: 20240716
  Serious: No
  Sender: FDA-Public Use
  Company Number: ES-PFIZER INC-PV202400038688

PATIENT

DRUGS (2)
  1. NGENLA [Suspect]
     Active Substance: SOMATROGON-GHLA
     Dosage: UNK
     Route: 058
  2. NGENLA [Suspect]
     Active Substance: SOMATROGON-GHLA
     Dosage: UNK
     Route: 058

REACTIONS (4)
  - Injection site pain [Unknown]
  - Device delivery system issue [Unknown]
  - Device mechanical issue [Unknown]
  - Device difficult to use [Unknown]

NARRATIVE: CASE EVENT DATE: 20240310
